FAERS Safety Report 15930506 (Version 3)
Quarter: 2020Q2

REPORT INFORMATION
  Report Type: Spontaneous
  Country: CH (occurrence: CH)
  Receive Date: 20190207
  Receipt Date: 20200519
  Transmission Date: 20200713
  Serious: Yes (Other)
  Sender: FDA-Public Use
  Company Number: CH-TEVA-2019-CH-1008827

PATIENT
  Sex: Female

DRUGS (14)
  1. NEXIUM [Suspect]
     Active Substance: ESOMEPRAZOLE MAGNESIUM
     Route: 042
     Dates: start: 201801
  2. BULBOID [Concomitant]
     Dates: start: 2017
  3. IRFEN [Suspect]
     Active Substance: IBUPROFEN
     Route: 048
     Dates: start: 2017, end: 201901
  4. GABAPENTINE [Suspect]
     Active Substance: GABAPENTIN
     Route: 048
  5. DAFALGAN [Suspect]
     Active Substance: ACETAMINOPHEN
     Route: 048
  6. CLEXANE [Concomitant]
     Active Substance: ENOXAPARIN SODIUM
     Dates: start: 201811
  7. DALACIN [Concomitant]
     Active Substance: CLINDAMYCIN
     Dates: start: 201811
  8. PRONTOLAX [Concomitant]
     Active Substance: BISACODYL
     Dates: start: 201801
  9. ECALTA [Concomitant]
     Active Substance: ANIDULAFUNGIN
     Dates: start: 201811
  10. SIRDALUD [Concomitant]
     Active Substance: TIZANIDINE
     Dates: start: 2017
  11. RIVOTRIL [Suspect]
     Active Substance: CLONAZEPAM
     Route: 042
  12. SERTRALINE [Suspect]
     Active Substance: SERTRALINE HYDROCHLORIDE
     Route: 048
  13. CALCIMAGON D3 [Concomitant]
     Active Substance: CALCIUM\CHOLECALCIFEROL
     Dates: start: 2017
  14. HYDROCORTISONE. [Concomitant]
     Active Substance: HYDROCORTISONE
     Dates: start: 201801

REACTIONS (1)
  - Inappropriate antidiuretic hormone secretion [Recovered/Resolved]

NARRATIVE: CASE EVENT DATE: 2018
